FAERS Safety Report 14806341 (Version 3)
Quarter: 2018Q2

REPORT INFORMATION
  Report Type: Spontaneous
  Country: DE (occurrence: DE)
  Receive Date: 20180425
  Receipt Date: 20180620
  Transmission Date: 20180711
  Serious: Yes (Hospitalization)
  Sender: FDA-Public Use
  Company Number: DE-PURDUE-GBR-2018-0055185

PATIENT
  Age: 77 Year
  Sex: Male

DRUGS (15)
  1. RAMIPRIL. [Concomitant]
     Active Substance: RAMIPRIL
     Dosage: 1 X DAILY 1/2 5 MG
     Dates: start: 20180302
  2. TARGIN [Suspect]
     Active Substance: NALOXONE HYDROCHLORIDE\OXYCODONE HYDROCHLORIDE
     Dosage: IN THE MORNING 20/10, IN THE AFTERNOON 20/10, IN THE EVENING 10/5
     Route: 065
     Dates: start: 20180226, end: 20180303
  3. AMLODIPIN                          /00972401/ [Concomitant]
     Active Substance: AMLODIPINE BESYLATE
     Dosage: 5 MG 1-0-0
  4. BISOPROLOL [Concomitant]
     Active Substance: BISOPROLOL
     Indication: ATRIAL FIBRILLATION
     Dosage: 2X1/2 X 0.25, 1/2-0-1/2
  5. TARGIN [Suspect]
     Active Substance: NALOXONE HYDROCHLORIDE\OXYCODONE HYDROCHLORIDE
     Dosage: IN THE MORNING 10/5, IN THE AFTERNOON 10/05, IN THE EVENING 10/5
     Route: 065
     Dates: start: 20180304, end: 20180306
  6. TARGIN [Suspect]
     Active Substance: NALOXONE HYDROCHLORIDE\OXYCODONE HYDROCHLORIDE
     Dosage: STRENGTH 20/10 MG, TID
     Route: 065
     Dates: start: 20171228
  7. TARGIN [Suspect]
     Active Substance: NALOXONE HYDROCHLORIDE\OXYCODONE HYDROCHLORIDE
     Dosage: STRENGTH 10/5 MG TID
     Route: 065
     Dates: start: 20171219
  8. APIXABAN [Concomitant]
     Active Substance: APIXABAN
     Indication: DEEP VEIN THROMBOSIS
     Dosage: 2.5 MG TWICE DAILY, 1-0-1
     Dates: start: 201301
  9. ATORVASTATIN [Concomitant]
     Active Substance: ATORVASTATIN
     Dosage: 10 MG 0-0-1
  10. TARGIN [Suspect]
     Active Substance: NALOXONE HYDROCHLORIDE\OXYCODONE HYDROCHLORIDE
     Indication: FRACTURE PAIN
     Dosage: IN THE MORNING 10/5
     Route: 065
     Dates: start: 20180310, end: 20180313
  11. TARGIN [Suspect]
     Active Substance: NALOXONE HYDROCHLORIDE\OXYCODONE HYDROCHLORIDE
     Dosage: IN THE MORNING 10/5, IN THE AFTERNOON 10/05
     Route: 065
     Dates: start: 20180307, end: 20180309
  12. RAMIPRIL. [Concomitant]
     Active Substance: RAMIPRIL
     Indication: CARDIOMYOPATHY
     Dosage: IN THE MORNING 5 MG, IN THE AFTERNOON 2.5MG, 1/2-0-1/2
  13. TORASEMIDE [Concomitant]
     Active Substance: TORSEMIDE
     Indication: PULMONARY OEDEMA
     Dosage: 5 MG, DAILY AS REQUIRED
     Dates: start: 20161220
  14. SPIRONOLACTONE. [Concomitant]
     Active Substance: SPIRONOLACTONE
     Indication: DERAILMENT
     Dosage: 25 MG ONCE DAILY, 1-0-0
     Dates: start: 20180412
  15. BISOPROLOL [Concomitant]
     Active Substance: BISOPROLOL
     Dosage: 1/2 X 0.25 DAILY
     Dates: start: 20161220

REACTIONS (13)
  - Hypertension [Recovered/Resolved]
  - Pyrexia [Unknown]
  - Cardiac disorder [Unknown]
  - Cough [Unknown]
  - Diarrhoea [Unknown]
  - Derailment [Unknown]
  - Coronary artery disease [Unknown]
  - Insomnia [Recovered/Resolved]
  - Chills [Unknown]
  - Depression [Not Recovered/Not Resolved]
  - Asthenia [Unknown]
  - Cardiac discomfort [Recovered/Resolved]
  - Product use issue [Unknown]

NARRATIVE: CASE EVENT DATE: 201803
